FAERS Safety Report 4790204-0 (Version None)
Quarter: 2005Q4

REPORT INFORMATION
  Report Type: 
  Country: None (occurrence: None)
  Receive Date: 20051006
  Receipt Date: 20050920
  Transmission Date: 20060501
  Serious: Yes (Other)
  Sender: FDA-Public Use
  Company Number: PHBS2005JP13854

PATIENT
  Age: 12 Year
  Sex: Female

DRUGS (4)
  1. NEORAL [Suspect]
     Indication: RENAL TRANSPLANT
     Dosage: 200 - 150 MG/D
     Route: 048
     Dates: start: 20050814
  2. NEORAL [Suspect]
     Dosage: 200 MG/D
     Route: 048
     Dates: start: 20050811, end: 20050811
  3. SIMULECT [Suspect]
     Indication: RENAL TRANSPLANT
     Route: 042
  4. SANDIMMUNE [Suspect]
     Indication: RENAL TRANSPLANT
     Dosage: 60 MG/D
     Route: 041
     Dates: start: 20050812, end: 20050813

REACTIONS (2)
  - ALANINE AMINOTRANSFERASE INCREASED [None]
  - ASPARTATE AMINOTRANSFERASE INCREASED [None]
